FAERS Safety Report 25480676 (Version 2)
Quarter: 2025Q3

REPORT INFORMATION
  Report Type: Spontaneous
  Country: US (occurrence: US)
  Receive Date: 20250625
  Receipt Date: 20250810
  Transmission Date: 20251021
  Serious: No
  Sender: ALEXION PHARMACEUTICALS
  Company Number: US-AstraZeneca-CH-00897461AP

PATIENT
  Sex: Female

DRUGS (3)
  1. BUDESONIDE\FORMOTEROL [Suspect]
     Active Substance: BUDESONIDE\FORMOTEROL
  2. SYMBICORT [Suspect]
     Active Substance: BUDESONIDE\FORMOTEROL FUMARATE DIHYDRATE
     Indication: Dyspnoea
  3. PREDNISONE [Suspect]
     Active Substance: PREDNISONE
     Indication: Mouth injury

REACTIONS (7)
  - Wrong technique in device usage process [Unknown]
  - Candida infection [Unknown]
  - Adverse drug reaction [Unknown]
  - Illness [Unknown]
  - Oral infection [Unknown]
  - Emergency care [Unknown]
  - Illness [Unknown]
